FAERS Safety Report 24148168 (Version 1)
Quarter: 2024Q3

REPORT INFORMATION
  Report Type: Spontaneous
  Country: US (occurrence: None)
  Receive Date: 20240728
  Receipt Date: 20240728
  Transmission Date: 20241017
  Serious: No
  Sender: Public
  Company Number: None

PATIENT
  Age: 72 Year
  Sex: Male
  Weight: 76.5 kg

DRUGS (1)
  1. LOKELMA [Suspect]
     Active Substance: SODIUM ZIRCONIUM CYCLOSILICATE
     Indication: Hyperkalaemia
     Dosage: 30 POWDER PACKET DAILY ORAL
     Route: 048
     Dates: start: 20240719, end: 20240722

REACTIONS (3)
  - Diarrhoea [None]
  - Diarrhoea [None]
  - Defaecation urgency [None]

NARRATIVE: CASE EVENT DATE: 20240722
